FAERS Safety Report 13783698 (Version 1)
Quarter: 2017Q3

REPORT INFORMATION
  Report Type: Spontaneous
  Country: US (occurrence: US)
  Receive Date: 20170724
  Receipt Date: 20170724
  Transmission Date: 20171127
  Serious: Yes (Other)
  Sender: FDA-Public Use
  Company Number: US-BAYER-2017-138799

PATIENT
  Sex: Female

DRUGS (1)
  1. AFRIN ORIGINAL [Suspect]
     Active Substance: OXYMETAZOLINE HYDROCHLORIDE
     Dosage: USED FOR A FEW WEEKS 2X A DAY

REACTIONS (3)
  - Incorrect drug administration duration [Unknown]
  - Drug dependence [Unknown]
  - Drug ineffective [Unknown]
